FAERS Safety Report 9566029 (Version 2)
Quarter: 2013Q4

REPORT INFORMATION
  Report Type: Report from Study
  Country: US (occurrence: US)
  Receive Date: 20130930
  Receipt Date: 20131114
  Transmission Date: 20140711
  Serious: Yes (Hospitalization, Other)
  Sender: FDA-Public Use
  Company Number: US-VERTEX PHARMACEUTICALS INC-2013-009978

PATIENT
  Sex: 0

DRUGS (3)
  1. INCIVEK [Suspect]
     Indication: HEPATITIS C
  2. RIBAVIRIN [Suspect]
     Indication: HEPATITIS C
     Dosage: UNK MG, UNK
  3. PEGASYS [Suspect]
     Indication: HEPATITIS C
     Dosage: UNK ?G, UNK

REACTIONS (6)
  - Neutropenia [Unknown]
  - Anaemia [Unknown]
  - Thrombocytopenia [Unknown]
  - Rash [Unknown]
  - Pruritus [Unknown]
  - Drug ineffective [Unknown]
